FAERS Safety Report 21377073 (Version 2)
Quarter: 2022Q3

REPORT INFORMATION
  Report Type: Report from Study
  Country: GB (occurrence: GB)
  Receive Date: 20220926
  Receipt Date: 20220928
  Transmission Date: 20221027
  Serious: Yes (Death, Hospitalization, Other)
  Sender: FDA-Public Use
  Company Number: GB-ROCHE-2621393

PATIENT
  Age: 76 Year
  Sex: Male
  Weight: 77.5 kg

DRUGS (51)
  1. CARBOPLATIN [Suspect]
     Active Substance: CARBOPLATIN
     Indication: Non-small cell lung cancer
     Dosage: UNK
     Route: 065
  2. CARBOPLATIN [Suspect]
     Active Substance: CARBOPLATIN
     Indication: Lung cancer metastatic
     Dosage: 630 MG
     Route: 065
     Dates: start: 20191216
  3. BEVACIZUMAB [Suspect]
     Active Substance: BEVACIZUMAB
     Indication: Non-small cell lung cancer
     Dosage: 1200 MG
     Route: 065
     Dates: start: 20191216
  4. BEVACIZUMAB [Suspect]
     Active Substance: BEVACIZUMAB
     Indication: Lung cancer metastatic
  5. PACLITAXEL [Suspect]
     Active Substance: PACLITAXEL
     Indication: Non-small cell lung cancer
     Dosage: UNK
     Route: 065
  6. PACLITAXEL [Suspect]
     Active Substance: PACLITAXEL
     Indication: Lung cancer metastatic
     Dosage: 420 MG
     Route: 065
     Dates: start: 20191216
  7. ATEZOLIZUMAB [Suspect]
     Active Substance: ATEZOLIZUMAB
     Indication: Non-small cell lung cancer
     Dosage: 1200 MG, EVERY 2 WEEKS
     Route: 042
     Dates: start: 20191216
  8. ATEZOLIZUMAB [Suspect]
     Active Substance: ATEZOLIZUMAB
     Indication: Lung cancer metastatic
     Dosage: 1200 MG, EVERY 3 WEEKS
     Route: 042
     Dates: start: 20200210
  9. ATEZOLIZUMAB [Suspect]
     Active Substance: ATEZOLIZUMAB
     Dosage: 1200 MG, EVERY 2 WEEKS
     Route: 042
     Dates: start: 20200302
  10. ATEZOLIZUMAB [Suspect]
     Active Substance: ATEZOLIZUMAB
     Dosage: 1200 MG, EVERY 2 WEEKS
     Route: 042
     Dates: start: 20200323
  11. ATEZOLIZUMAB [Suspect]
     Active Substance: ATEZOLIZUMAB
     Dosage: DATE OF MOST RECENT DOSE OF ATEZOLIZUMAB PRIOR TO AE ONSET: 14APR2020
     Route: 042
     Dates: start: 20200414
  12. ETOPOSIDE [Suspect]
     Active Substance: ETOPOSIDE
     Indication: Lung cancer metastatic
     Dosage: 630 MG, UNK
     Route: 065
  13. ETOPOSIDE [Suspect]
     Active Substance: ETOPOSIDE
     Indication: Non-small cell lung cancer
     Dosage: UNK
  14. MAGNESIUM ASPARTATE [Concomitant]
     Active Substance: MAGNESIUM ASPARTATE
     Dosage: UNK
     Dates: start: 20200603, end: 20200605
  15. PREDNISOLONE [Concomitant]
     Active Substance: PREDNISOLONE
     Dosage: UNK, 1X/DAY
     Dates: start: 20190701
  16. PREDNISOLONE [Concomitant]
     Active Substance: PREDNISOLONE
     Dosage: UNK, 1X/DAY
     Dates: start: 20200414
  17. PREDNISOLONE [Concomitant]
     Active Substance: PREDNISOLONE
     Dosage: UNK, 1X/DAY
     Dates: start: 20200519, end: 20200528
  18. GLUCOSAMINE [Concomitant]
     Active Substance: GLUCOSAMINE
     Dosage: 0.5 DF, DAILY
     Route: 065
  19. METHYLPREDNISOLONE [Concomitant]
     Active Substance: METHYLPREDNISOLONE
     Dosage: UNK, 1X/DAY
     Dates: start: 20200518, end: 20200518
  20. METHYLPREDNISOLONE [Concomitant]
     Active Substance: METHYLPREDNISOLONE
     Dosage: UNK, 1X/DAY
     Dates: start: 20200519
  21. CHLOROFORM\CODEINE PHOSPHATE\DRIMIA MARITIMA BULB [Concomitant]
     Active Substance: CHLOROFORM\CODEINE PHOSPHATE\DRIMIA MARITIMA BULB
     Dosage: UNK, AS NEEDED
     Dates: start: 20191001
  22. CHLOROFORM\CODEINE PHOSPHATE\DRIMIA MARITIMA BULB [Concomitant]
     Active Substance: CHLOROFORM\CODEINE PHOSPHATE\DRIMIA MARITIMA BULB
     Dosage: 1, DAILY
     Route: 065
     Dates: start: 20200526, end: 20200529
  23. COTRIMOXAZOLE [Concomitant]
     Active Substance: SULFAMETHOXAZOLE\TRIMETHOPRIM
     Indication: Prophylaxis
     Dosage: 1X/DAY
     Dates: start: 20200518, end: 20200520
  24. COTRIMOXAZOLE [Concomitant]
     Active Substance: SULFAMETHOXAZOLE\TRIMETHOPRIM
     Dosage: 0.5 DF DAY
     Route: 065
     Dates: start: 20200518, end: 20200520
  25. COTRIMOXAZOLE [Concomitant]
     Active Substance: SULFAMETHOXAZOLE\TRIMETHOPRIM
     Dosage: 0.33, DAILY
     Route: 065
     Dates: start: 20200527
  26. POLYETHYLENE GLYCOL 3350\POTASSIUM CHLORIDE\SODIUM BICARBONATE\SODIUM [Concomitant]
     Active Substance: POLYETHYLENE GLYCOL 3350\POTASSIUM CHLORIDE\SODIUM BICARBONATE\SODIUM CHLORIDE
     Dosage: UNK UNK, 1X/DAY
     Dates: start: 20190201
  27. CHOLECALCIFEROL [Concomitant]
     Active Substance: CHOLECALCIFEROL
     Dosage: 1, 1X/DAY
     Dates: start: 20191213
  28. ACETAMINOPHEN [Concomitant]
     Active Substance: ACETAMINOPHEN
     Dosage: UNK
     Dates: start: 20200319
  29. ACETAMINOPHEN [Concomitant]
     Active Substance: ACETAMINOPHEN
     Dosage: 0.25 DAY
     Dates: start: 20200518, end: 20200608
  30. PANTOPRAZOLE [Concomitant]
     Active Substance: PANTOPRAZOLE
     Dosage: UNK, 0.5 DAY
     Dates: start: 20181201
  31. PANTOPRAZOLE [Concomitant]
     Active Substance: PANTOPRAZOLE
     Dosage: UNK
     Dates: start: 20200519, end: 20200528
  32. CALCIUM\CHOLECALCIFEROL [Concomitant]
     Active Substance: CALCIUM\CHOLECALCIFEROL
     Dosage: UNK UNK, 1X/DAY
     Dates: start: 20200520, end: 20200608
  33. SODIUM CHLORIDE [Concomitant]
     Active Substance: SODIUM CHLORIDE
     Dosage: 1, AS NEEDED
     Dates: start: 20200518, end: 20200518
  34. SODIUM CHLORIDE [Concomitant]
     Active Substance: SODIUM CHLORIDE
     Dosage: 1, AS NEEDED
     Dates: start: 20200526, end: 20200607
  35. PIPERACILLIN SODIUM\TAZOBACTAM SODIUM [Concomitant]
     Active Substance: PIPERACILLIN SODIUM\TAZOBACTAM SODIUM
     Dosage: UNK
     Dates: start: 20200518, end: 20200521
  36. TINZAPARIN [Concomitant]
     Active Substance: TINZAPARIN
     Indication: Prophylaxis
     Dosage: 1, DAILY
     Route: 065
     Dates: start: 20200518, end: 20200608
  37. BECLOMETHASONE [Concomitant]
     Active Substance: BECLOMETHASONE
     Dosage: 0.5 DF, DAILY
     Dates: start: 20191101
  38. BECLOMETHASONE [Concomitant]
     Active Substance: BECLOMETHASONE
     Dosage: 0.5 DF, DAILY
     Dates: start: 20200520, end: 20200608
  39. MAGNESIUM SULFATE [Concomitant]
     Active Substance: MAGNESIUM SULFATE
     Dosage: UNK UNK, DAILY
     Dates: start: 20200518, end: 20200518
  40. MAGNESIUM SULFATE [Concomitant]
     Active Substance: MAGNESIUM SULFATE
     Dosage: UNK
     Dates: start: 20200603, end: 20200605
  41. BUTYLSCOPOLAMINE BROMIDE [Concomitant]
     Active Substance: BUTYLSCOPOLAMINE BROMIDE
     Dosage: UNK, AS NEEDED
     Dates: start: 20200305
  42. ALBUTEROL [Concomitant]
     Active Substance: ALBUTEROL
     Dosage: 1, AS NEEDED
     Route: 065
     Dates: start: 20200518, end: 20200518
  43. RANITIDINE [Concomitant]
     Active Substance: RANITIDINE
     Indication: Prophylaxis
     Dosage: 1, DAILY
     Dates: start: 20200529, end: 20200608
  44. IMODIUM [Concomitant]
     Active Substance: LOPERAMIDE HYDROCHLORIDE
     Indication: Diarrhoea
     Dosage: UNK
     Route: 065
     Dates: start: 20200318
  45. CARBOHYDRATES\FATTY ACIDS\MINERALS\PROTEIN\VITAMINS [Concomitant]
     Active Substance: CARBOHYDRATES\FATTY ACIDS\MINERALS\PROTEIN\VITAMINS
     Dosage: 0.5 DF
  46. PYRIDOXINE HYDROCHLORIDE [Concomitant]
     Active Substance: PYRIDOXINE HYDROCHLORIDE
     Dosage: UNK, DAILY
     Dates: start: 20200520, end: 20200608
  47. MAGNESIUM OXIDE [Concomitant]
     Active Substance: MAGNESIUM OXIDE
     Dosage: UNK, DAILY
     Dates: start: 20200520, end: 20200608
  48. CHOLECALCIFEROL [Concomitant]
     Active Substance: CHOLECALCIFEROL
     Dosage: UNK
     Dates: start: 20191213, end: 20200319
  49. CHOLECALCIFEROL [Concomitant]
     Active Substance: CHOLECALCIFEROL
     Dosage: UNK, DAILY
     Dates: start: 20200520, end: 20200608
  50. FOLIC ACID [Concomitant]
     Active Substance: FOLIC ACID
     Dosage: UNK, DAILY
     Dates: start: 20200520, end: 20200608
  51. SODIUM CHLORIDE [Concomitant]
     Active Substance: SODIUM CHLORIDE
     Dosage: UNK
     Dates: start: 20200526, end: 20200607

REACTIONS (15)
  - Neoplasm progression [Fatal]
  - Pneumonia [Not Recovered/Not Resolved]
  - Lower respiratory tract infection [Recovered/Resolved]
  - Pyrexia [Recovered/Resolved]
  - Neuropathy peripheral [Recovered/Resolved]
  - Hypomagnesaemia [Recovered/Resolved]
  - Constipation [Recovered/Resolved]
  - Decubitus ulcer [Not Recovered/Not Resolved]
  - Stomatitis [Recovered/Resolved]
  - Dysuria [Recovered/Resolved]
  - Hyponatraemia [Recovered/Resolved]
  - Abdominal pain [Recovered/Resolved]
  - Diarrhoea [Recovered/Resolved]
  - Chest pain [Recovered/Resolved]
  - Oedema peripheral [Recovered/Resolved]

NARRATIVE: CASE EVENT DATE: 20191218
